FAERS Safety Report 4283405-1 (Version None)
Quarter: 2004Q1

REPORT INFORMATION
  Report Type: 
  Country: None (occurrence: None)
  Receive Date: 20040202
  Receipt Date: 20040122
  Transmission Date: 20041129
  Serious: Yes (Other)
  Sender: FDA-Public Use
  Company Number: 200410935GDDC

PATIENT
  Age: 57 Year
  Sex: Male
  Weight: 95 kg

DRUGS (8)
  1. ARAVA [Suspect]
     Route: 048
     Dates: start: 20010214, end: 20031027
  2. PREDNISOLONE [Concomitant]
     Route: 048
     Dates: start: 19900101
  3. METOPROLOL [Concomitant]
     Route: 048
     Dates: start: 20010101
  4. IRBESARTAN [Concomitant]
     Route: 048
     Dates: start: 20010101
  5. ASPIRIN [Concomitant]
     Indication: CORONARY ARTERY DISEASE
     Route: 048
     Dates: start: 20000101
  6. GLICLAZIDE [Concomitant]
     Route: 048
     Dates: start: 19950101
  7. ROFECOXIB [Concomitant]
     Indication: RHEUMATOID ARTHRITIS
     Route: 048
     Dates: start: 20010101
  8. TAMSULOSIN [Concomitant]
     Route: 048
     Dates: start: 20000101

REACTIONS (5)
  - AGITATION [None]
  - CHEST PAIN [None]
  - CHILLS [None]
  - DRUG WITHDRAWAL SYNDROME [None]
  - HYPERHIDROSIS [None]
